FAERS Safety Report 24689512 (Version 1)
Quarter: 2024Q4

REPORT INFORMATION
  Report Type: Other
  Country: FR (occurrence: FR)
  Receive Date: 20241203
  Receipt Date: 20241203
  Transmission Date: 20250115
  Serious: Yes (Hospitalization)
  Sender: ZYDUS PHARM
  Company Number: None

PATIENT

DRUGS (3)
  1. ACETAMINOPHEN [Suspect]
     Active Substance: ACETAMINOPHEN
     Indication: Poisoning deliberate
     Dosage: 16 GRAM
     Route: 048
     Dates: start: 20240813, end: 20240813
  2. MIRTAZAPINE [Suspect]
     Active Substance: MIRTAZAPINE
     Indication: Poisoning deliberate
     Dosage: 150 MILLIGRAM
     Route: 048
     Dates: start: 20240813, end: 20240813
  3. DIAZEPAM [Suspect]
     Active Substance: DIAZEPAM
     Indication: Poisoning deliberate
     Dosage: 100 MILLIGRAM
     Route: 048
     Dates: start: 20240813, end: 20240813

REACTIONS (3)
  - Tachycardia [Recovering/Resolving]
  - Transaminases increased [Recovering/Resolving]
  - Toxicity to various agents [Recovering/Resolving]

NARRATIVE: CASE EVENT DATE: 20240813
